FAERS Safety Report 5522465-4 (Version None)
Quarter: 2007Q4

REPORT INFORMATION
  Report Type: 
  Country: None (occurrence: None)
  Receive Date: 20071120
  Receipt Date: 20071114
  Transmission Date: 20080405
  Serious: Yes (Other)
  Sender: FDA-Public Use
  Company Number: US-SANOFI-SYNTHELABO-A03200603353

PATIENT
  Sex: Female
  Weight: 74.08 kg

DRUGS (1)
  1. PLAQUENIL [Suspect]
     Indication: ARTHRITIS
     Route: 048
     Dates: start: 19910101

REACTIONS (7)
  - CATARACT [None]
  - LENS DISORDER [None]
  - MACULAR OEDEMA [None]
  - NIGHT BLINDNESS [None]
  - PHOTOPHOBIA [None]
  - RETINAL DEGENERATION [None]
  - RETINOPATHY [None]
